FAERS Safety Report 9518741 (Version 2)
Quarter: 2014Q1

REPORT INFORMATION
  Report Type: Report from Study
  Country: NL (occurrence: NL)
  Receive Date: 20130912
  Receipt Date: 20140227
  Transmission Date: 20141002
  Serious: Yes (Death)
  Sender: FDA-Public Use
  Company Number: PHHY2013NL100309

PATIENT
  Age: 73 Year
  Sex: Male

DRUGS (4)
  1. ZOMETA [Suspect]
     Indication: PLASMA CELL MYELOMA
     Dosage: 4 MG PER 100 ML ONCE EVERY 4 WEEKS
     Route: 042
  2. ZOMETA [Suspect]
     Dosage: 4 MG PER 100 ML ONCE EVERY 4 WEEKS
     Route: 042
     Dates: start: 20130621
  3. ZOMETA [Suspect]
     Dosage: 4 MG PER 100 ML ONCE EVERY 4 WEEKS
     Route: 042
     Dates: start: 20130719
  4. ZOMETA [Suspect]
     Dosage: 4 MG PER 100 ML ONCE EVERY 4 WEEKS
     Route: 042
     Dates: start: 20130815

REACTIONS (1)
  - Death [Fatal]
